FAERS Safety Report 17550756 (Version 1)
Quarter: 2020Q1

REPORT INFORMATION
  Report Type: Spontaneous
  Country: US (occurrence: US)
  Receive Date: 20200317
  Receipt Date: 20200317
  Transmission Date: 20200409
  Serious: Yes (Death, Hospitalization, Other)
  Sender: FDA-Public Use
  Company Number: US-GLAXOSMITHKLINE-US2020GSK046284

PATIENT
  Sex: Female

DRUGS (2)
  1. PREVACID [Suspect]
     Active Substance: LANSOPRAZOLE
     Indication: GASTROOESOPHAGEAL REFLUX DISEASE
     Dosage: UNK
     Route: 065
     Dates: start: 2010, end: 2016
  2. PREVACID [Suspect]
     Active Substance: LANSOPRAZOLE
     Indication: GASTROOESOPHAGEAL REFLUX DISEASE
     Dosage: 20 MG
     Route: 065
     Dates: start: 2010, end: 2016

REACTIONS (10)
  - Acute kidney injury [Unknown]
  - Nephrostomy [Unknown]
  - Death [Fatal]
  - Hydronephrosis [Unknown]
  - Renal impairment [Unknown]
  - Dialysis [Unknown]
  - Renal failure [Unknown]
  - End stage renal disease [Unknown]
  - Haemodialysis [Unknown]
  - Renal injury [Unknown]
